FAERS Safety Report 21618567 (Version 1)
Quarter: 2022Q4

REPORT INFORMATION
  Report Type: Spontaneous
  Country: BR (occurrence: BR)
  Receive Date: 20221119
  Receipt Date: 20221119
  Transmission Date: 20230112
  Serious: Yes (Other)
  Sender: FDA-Public Use
  Company Number: BR-TAKEDA-2022TUS086165

PATIENT
  Age: 26 Year

DRUGS (3)
  1. LISDEXAMFETAMINE DIMESYLATE [Suspect]
     Active Substance: LISDEXAMFETAMINE DIMESYLATE
     Indication: Ill-defined disorder
     Dosage: 50 MILLIGRAM, QD
     Route: 065
  2. LISDEXAMFETAMINE DIMESYLATE [Suspect]
     Active Substance: LISDEXAMFETAMINE DIMESYLATE
     Dosage: 150 MILLIGRAM, QD
     Route: 065
  3. ALPRAZOLAM [Suspect]
     Active Substance: ALPRAZOLAM
     Indication: Sleep disorder
     Dosage: UNK UNK, QD
     Route: 065

REACTIONS (17)
  - Drug dependence [Unknown]
  - Intentional misuse of drug delivery system [Unknown]
  - Hallucination [Unknown]
  - Drug abuse [Unknown]
  - Intentional product misuse [Unknown]
  - Insomnia [Unknown]
  - Heart rate irregular [Unknown]
  - Prescription drug used without a prescription [Unknown]
  - Dissociative disorder [Unknown]
  - Feeling abnormal [Unknown]
  - Aggression [Unknown]
  - Alcohol use [Unknown]
  - Nausea [Unknown]
  - Vomiting [Unknown]
  - Cold sweat [Unknown]
  - Feeding disorder [Unknown]
  - Off label use [Unknown]
